FAERS Safety Report 5392045-2 (Version None)
Quarter: 2007Q3

REPORT INFORMATION
  Report Type: 
  Country: None (occurrence: None)
  Receive Date: 20070720
  Receipt Date: 20070711
  Transmission Date: 20080115
  Serious: Yes (Other)
  Sender: FDA-Public Use
  Company Number: GB-JNJFOC-20070702367

PATIENT
  Sex: Male
  Weight: 86 kg

DRUGS (4)
  1. REMICADE [Suspect]
     Route: 042
  2. REMICADE [Suspect]
     Indication: RHEUMATOID ARTHRITIS
     Route: 042
  3. FOLIC ACID [Concomitant]
  4. METHOTREXATE [Concomitant]

REACTIONS (1)
  - BASAL CELL CARCINOMA [None]
